FAERS Safety Report 17536100 (Version 2)
Quarter: 2020Q2

REPORT INFORMATION
  Report Type: Report from Study
  Country: None (occurrence: DE)
  Receive Date: 20200313
  Receipt Date: 20200401
  Transmission Date: 20200713
  Serious: Yes (Death, Hospitalization, Other)
  Sender: FDA-Public Use
  Company Number: DE-ABBVIE-20K-062-3317770-00

PATIENT
  Age: 69 Year
  Sex: Male

DRUGS (14)
  1. DUODOPA [Suspect]
     Active Substance: CARBIDOPA\LEVODOPA
     Indication: PARKINSON^S DISEASE
     Dosage: MD 7.8ML / CRD 2.3ML/H / ED 1.0ML
     Route: 050
     Dates: start: 20180705
  2. DUODOPA [Suspect]
     Active Substance: CARBIDOPA\LEVODOPA
     Dosage: MD: 7.8 ML; CRD: 3.3 ML/H L-DOPA/CARBIDOPA 20/5 MG/ML
     Route: 050
  3. RAMIPRIL. [Concomitant]
     Active Substance: RAMIPRIL
     Indication: PRODUCT USED FOR UNKNOWN INDICATION
  4. LEVODOPA [Concomitant]
     Active Substance: LEVODOPA
     Indication: PRODUCT USED FOR UNKNOWN INDICATION
     Dosage: 200/50MG
  5. OPICAPONE [Concomitant]
     Active Substance: OPICAPONE
     Indication: PRODUCT USED FOR UNKNOWN INDICATION
     Dosage: 1/2
  6. DOXAZOSIN [Concomitant]
     Active Substance: DOXAZOSIN MESYLATE
     Indication: PRODUCT USED FOR UNKNOWN INDICATION
  7. L-THYROX [Concomitant]
     Active Substance: LEVOTHYROXINE SODIUM
     Indication: PRODUCT USED FOR UNKNOWN INDICATION
  8. MAGNESIUM VERLA [Concomitant]
     Active Substance: MAGNESIUM
     Indication: PRODUCT USED FOR UNKNOWN INDICATION
  9. QUETIAPIN [Concomitant]
     Active Substance: QUETIAPINE
     Indication: PRODUCT USED FOR UNKNOWN INDICATION
  10. CARBAMAZEPIN [Concomitant]
     Active Substance: CARBAMAZEPINE
     Indication: PRODUCT USED FOR UNKNOWN INDICATION
  11. TORASEMID [Concomitant]
     Active Substance: TORSEMIDE
     Indication: PRODUCT USED FOR UNKNOWN INDICATION
  12. ASPIRIN. [Concomitant]
     Active Substance: ASPIRIN
     Indication: PRODUCT USED FOR UNKNOWN INDICATION
  13. CITALOPRAM [Concomitant]
     Active Substance: CITALOPRAM HYDROBROMIDE
     Indication: PRODUCT USED FOR UNKNOWN INDICATION
  14. LERCANIDIPINE [Concomitant]
     Active Substance: LERCANIDIPINE
     Indication: PRODUCT USED FOR UNKNOWN INDICATION
     Dosage: 1/2

REACTIONS (41)
  - Urinary tract infection [Unknown]
  - White blood cell count increased [Unknown]
  - Haemoglobin decreased [Unknown]
  - Seizure [Fatal]
  - Blood creatinine increased [Recovered/Resolved]
  - Cough [Unknown]
  - Tongue dry [Unknown]
  - Haematocrit decreased [Unknown]
  - Activated partial thromboplastin time prolonged [Unknown]
  - Aspartate aminotransferase decreased [Unknown]
  - Atelectasis [Unknown]
  - Stoma site erythema [Unknown]
  - Epilepsy [Fatal]
  - Infection [Unknown]
  - Cardiac discomfort [Unknown]
  - Stoma site infection [Unknown]
  - Red blood cell count decreased [Unknown]
  - C-reactive protein increased [Unknown]
  - Anaemia macrocytic [Not Recovered/Not Resolved]
  - Hypertension [Unknown]
  - General physical health deterioration [Unknown]
  - Pyrexia [Unknown]
  - Alanine aminotransferase decreased [Unknown]
  - Breath sounds abnormal [Unknown]
  - Inflammatory marker increased [Unknown]
  - Spinal compression fracture [Unknown]
  - Hypertensive heart disease [Unknown]
  - Chronic kidney disease [Unknown]
  - Blood potassium increased [Recovered/Resolved]
  - Blood glucose increased [Unknown]
  - Fall [Unknown]
  - Pneumonia [Unknown]
  - Acute kidney injury [Unknown]
  - Spinal pain [Unknown]
  - Respiration abnormal [Unknown]
  - Spinal osteoarthritis [Unknown]
  - Cervical vertebral fracture [Unknown]
  - Blood urea increased [Recovered/Resolved]
  - Blood thyroid stimulating hormone decreased [Unknown]
  - Tri-iodothyronine decreased [Unknown]
  - Stoma site discharge [Unknown]

NARRATIVE: CASE EVENT DATE: 201910
